FAERS Safety Report 9438376 (Version 1)
Quarter: 2013Q3

REPORT INFORMATION
  Report Type: Spontaneous
  Country: US (occurrence: US)
  Receive Date: 20130802
  Receipt Date: 20130802
  Transmission Date: 20140515
  Serious: No
  Sender: FDA-Public Use
  Company Number: US-BRISTOL-MYERS SQUIBB COMPANY-17039009

PATIENT
  Age: 72 Year
  Sex: Male

DRUGS (1)
  1. COUMADIN [Suspect]
     Indication: ARRHYTHMIA
     Dosage: 5MG 3TIME/WEEK,2.5MG 4TIME/WEEK TO 5MG 6TIME/WEEK, 2.5MG 1TIME/WEEK.

REACTIONS (1)
  - International normalised ratio decreased [Unknown]
